FAERS Safety Report 4822243-5 (Version None)
Quarter: 2005Q4

REPORT INFORMATION
  Report Type: 
  Country: None (occurrence: None)
  Receive Date: 20051103
  Receipt Date: 20051020
  Transmission Date: 20060501
  Serious: Yes (Death, Life-Threatening, Hospitalization, Other)
  Sender: FDA-Public Use
  Company Number: 21629

PATIENT
  Age: 79 Year
  Sex: Male

DRUGS (1)
  1. CISPLATIN [Suspect]
     Indication: NEOPLASM MALIGNANT
     Dosage: 100 MG/M2 CYC IV
     Route: 042

REACTIONS (6)
  - DRUG TOXICITY [None]
  - HAEMODIALYSIS [None]
  - HYPOXIA [None]
  - MYOCARDIAL INFARCTION [None]
  - PULMONARY OEDEMA [None]
  - RENAL FAILURE [None]
